FAERS Safety Report 25253120 (Version 1)
Quarter: 2025Q2

REPORT INFORMATION
  Report Type: Spontaneous
  Country: US (occurrence: US)
  Receive Date: 20250430
  Receipt Date: 20250430
  Transmission Date: 20250717
  Serious: No
  Sender: ABBVIE
  Company Number: US-ABBVIE-6244013

PATIENT
  Sex: Female

DRUGS (1)
  1. LEXAPRO [Suspect]
     Active Substance: ESCITALOPRAM OXALATE
     Indication: Product used for unknown indication
     Route: 065

REACTIONS (8)
  - Muscle twitching [Unknown]
  - Migraine [Unknown]
  - Nausea [Unknown]
  - Balance disorder [Unknown]
  - Drug intolerance [Unknown]
  - Back disorder [Unknown]
  - Diabetes mellitus [Unknown]
  - Oestrogen receptor assay positive [Unknown]
